FAERS Safety Report 22150702 (Version 1)
Quarter: 2023Q1

REPORT INFORMATION
  Report Type: Report from Study
  Country: JP (occurrence: JP)
  Receive Date: 20230329
  Receipt Date: 20230329
  Transmission Date: 20230418
  Serious: Yes (Other)
  Sender: FDA-Public Use
  Company Number: JP-TAKEDA-2023TJP003832

PATIENT

DRUGS (1)
  1. NIRAPARIB [Suspect]
     Active Substance: NIRAPARIB
     Indication: Ovarian cancer
     Dosage: UNK
     Route: 048
     Dates: start: 2021

REACTIONS (5)
  - Ovarian cancer [Unknown]
  - Neutropenia [Unknown]
  - Platelet count decreased [Unknown]
  - Nausea [Unknown]
  - Anaemia [Unknown]
